FAERS Safety Report 5533199-4 (Version None)
Quarter: 2007Q4

REPORT INFORMATION
  Report Type: 
  Country: None (occurrence: None)
  Receive Date: 20071129
  Receipt Date: 20071129
  Transmission Date: 20080405
  Serious: Yes (Hospitalization)
  Sender: FDA-Public Use
  Company Number: None

PATIENT
  Sex: Male

DRUGS (1)
  1. TEKTURNA [Suspect]
     Indication: HYPERTENSION
     Dosage: 150MG  DAILY  PO;   300MG  ONCE  PO
     Route: 048
     Dates: start: 20070811, end: 20071126

REACTIONS (2)
  - BLOOD PRESSURE INCREASED [None]
  - DRUG EFFECT DECREASED [None]
